FAERS Safety Report 23417071 (Version 2)
Quarter: 2024Q1

REPORT INFORMATION
  Report Type: Spontaneous
  Country: US (occurrence: US)
  Receive Date: 20240118
  Receipt Date: 20240221
  Transmission Date: 20240410
  Serious: No
  Sender: FDA-Public Use
  Company Number: US-PFIZER INC-202400013661

PATIENT
  Age: 50 Year
  Sex: Female
  Weight: 56.7 kg

DRUGS (1)
  1. PREMARIN [Suspect]
     Active Substance: ESTROGENS, CONJUGATED
     Indication: Hormone replacement therapy
     Dosage: ONE TABLET A DAY
     Route: 048
     Dates: start: 201212

REACTIONS (2)
  - Cognitive disorder [Not Recovered/Not Resolved]
  - Product confusion [Unknown]

NARRATIVE: CASE EVENT DATE: 20240111
